FAERS Safety Report 8866184 (Version 1)
Quarter: 2012Q4

REPORT INFORMATION
  Report Type: 
  Country: CA (occurrence: CA)
  Receive Date: 20121025
  Receipt Date: 20121025
  Transmission Date: 20130627
  Serious: Yes (Hospitalization)
  Sender: FDA-Public Use
  Company Number: PHHY2012CA095174

PATIENT
  Age: 27 Year
  Sex: Female

DRUGS (1)
  1. TOBI [Suspect]

REACTIONS (1)
  - Foot fracture [Unknown]
